FAERS Safety Report 21720594 (Version 4)
Quarter: 2023Q4

REPORT INFORMATION
  Report Type: Spontaneous
  Country: US (occurrence: US)
  Receive Date: 20221213
  Receipt Date: 20231227
  Transmission Date: 20240109
  Serious: No
  Sender: FDA-Public Use
  Company Number: US-BRISTOL-MYERS SQUIBB COMPANY-2022-152101

PATIENT
  Age: 69 Year
  Sex: Female

DRUGS (3)
  1. REVLIMID [Suspect]
     Active Substance: LENALIDOMIDE
     Indication: Product used for unknown indication
     Route: 048
  2. POMALYST [Suspect]
     Active Substance: POMALIDOMIDE
     Indication: Plasma cell myeloma
     Route: 048
  3. POMALYST [Suspect]
     Active Substance: POMALIDOMIDE
     Route: 048

REACTIONS (8)
  - Inappropriate schedule of product administration [Unknown]
  - Eye infection [Unknown]
  - Fatigue [Unknown]
  - Chest discomfort [Unknown]
  - Vomiting [Unknown]
  - Diarrhoea [Unknown]
  - Temperature intolerance [Unknown]
  - Asthma [Unknown]

NARRATIVE: CASE EVENT DATE: 20221209
